FAERS Safety Report 6028560-8 (Version None)
Quarter: 2009Q1

REPORT INFORMATION
  Report Type: 
  Country: None (occurrence: None)
  Receive Date: 20090106
  Receipt Date: 20081229
  Transmission Date: 20090719
  Serious: Yes (Other)
  Sender: FDA-Public Use
  Company Number: US-ELI_LILLY_AND_COMPANY-US200812006051

PATIENT
  Sex: Female

DRUGS (3)
  1. HUMALOG [Suspect]
     Dates: start: 20030101
  2. HUMALOG [Suspect]
     Indication: DIABETES MELLITUS
     Dosage: 35 U, UNK
  3. HUMALOG [Suspect]
     Dosage: UNK, UNKNOWN

REACTIONS (5)
  - BLINDNESS [None]
  - BLINDNESS UNILATERAL [None]
  - INCORRECT DOSE ADMINISTERED [None]
  - PYREXIA [None]
  - UPPER RESPIRATORY TRACT INFECTION [None]
